FAERS Safety Report 4808718-3 (Version None)
Quarter: 2005Q4

REPORT INFORMATION
  Report Type: 
  Country: None (occurrence: None)
  Receive Date: 20051021
  Receipt Date: 20030916
  Transmission Date: 20060501
  Serious: No
  Sender: FDA-Public Use
  Company Number: EWC030936343

PATIENT
  Age: 40 Year
  Sex: Male

DRUGS (1)
  1. OLANZAPINE [Suspect]
     Indication: SCHIZOPHRENIA
     Dosage: 10 MG/DAY
     Dates: start: 20030710

REACTIONS (4)
  - ALANINE AMINOTRANSFERASE INCREASED [None]
  - ASPARTATE AMINOTRANSFERASE INCREASED [None]
  - BLOOD GLUCOSE INCREASED [None]
  - EOSINOPHILIA [None]
